FAERS Safety Report 9684694 (Version 2)
Quarter: 2014Q1

REPORT INFORMATION
  Report Type: Spontaneous
  Country: US (occurrence: None)
  Receive Date: 20131108
  Receipt Date: 20140328
  Transmission Date: 20141002
  Serious: Yes (Hospitalization)
  Sender: FDA-Public Use
  Company Number: 2013095

PATIENT
  Age: 5 Year
  Sex: Female

DRUGS (2)
  1. 4% CHG SOLUTION [Suspect]
     Indication: PREOPERATIVE CARE
     Route: 061
     Dates: start: 201309
  2. CHLORAPREP [Suspect]
     Indication: PREOPERATIVE CARE
     Route: 061
     Dates: start: 201309

REACTIONS (1)
  - Bacterial infection [None]
